FAERS Safety Report 9626776 (Version 2)
Quarter: 2014Q1

REPORT INFORMATION
  Report Type: Spontaneous
  Country: FR (occurrence: FR)
  Receive Date: 20131016
  Receipt Date: 20140303
  Transmission Date: 20141002
  Serious: Yes (Hospitalization)
  Sender: FDA-Public Use
  Company Number: FR-GLAXOSMITHKLINE-B0911754A

PATIENT
  Age: 47 Year
  Sex: Female

DRUGS (10)
  1. ZELITREX [Suspect]
     Indication: PRODUCT USED FOR UNKNOWN INDICATION
     Dosage: 500MG PER DAY
     Route: 048
  2. KIVEXA [Suspect]
     Indication: HIV INFECTION
     Route: 048
     Dates: start: 201106
  3. PREZISTA [Suspect]
     Indication: HIV INFECTION
     Dosage: 600MG TWICE PER DAY
     Route: 048
     Dates: start: 201106
  4. ISENTRESS [Suspect]
     Indication: HIV INFECTION
     Dosage: 400MG TWICE PER DAY
     Route: 048
     Dates: start: 201202
  5. NORVIR [Suspect]
     Indication: HIV INFECTION
     Route: 048
     Dates: start: 201106
  6. TRIATEC [Suspect]
     Indication: PRODUCT USED FOR UNKNOWN INDICATION
     Route: 048
  7. DEXERYL (FRANCE) [Concomitant]
     Indication: DERMATOSIS
     Route: 065
  8. CORTANCYL [Concomitant]
     Indication: DERMATOSIS
     Route: 065
  9. CORTICOIDS [Concomitant]
     Indication: DERMATOSIS
     Route: 061
  10. ATARAX [Concomitant]
     Dosage: 25MG PER DAY

REACTIONS (1)
  - Vertigo [Not Recovered/Not Resolved]
